FAERS Safety Report 7922242-0 (Version None)
Quarter: 2011Q4

REPORT INFORMATION
  Report Type: 
  Country: None (occurrence: None)
  Receive Date: 20111117
  Receipt Date: 20110118
  Transmission Date: 20120403
  Serious: No
  Sender: FDA-Public Use
  Company Number: US-AMGEN-USASP2011003226

PATIENT
  Age: 69 Year

DRUGS (5)
  1. ENBREL [Suspect]
     Indication: PSORIATIC ARTHROPATHY
     Dosage: 50 MG, QWK
     Dates: start: 20090402
  2. VESICARE [Concomitant]
  3. CLARINEX                           /01202601/ [Concomitant]
  4. NEXIUM [Concomitant]
  5. ESTRADIOL [Concomitant]

REACTIONS (1)
  - RAYNAUD'S PHENOMENON [None]
